FAERS Safety Report 9356299 (Version 1)
Quarter: 2013Q2

REPORT INFORMATION
  Report Type: Spontaneous
  Country: US (occurrence: US)
  Receive Date: 20130619
  Receipt Date: 20130619
  Transmission Date: 20140414
  Serious: Yes (Hospitalization)
  Sender: FDA-Public Use
  Company Number: US-WATSON-2013-10479

PATIENT
  Age: 61 Year
  Sex: Female

DRUGS (1)
  1. HYDROXYCHLOROQUINE SULFATE (WATSON LABORATORIES) [Suspect]
     Indication: SCLERODERMA
     Dosage: 200 MG, BID
     Route: 048
     Dates: start: 20130417, end: 20130502

REACTIONS (4)
  - Thermal burn [Recovering/Resolving]
  - Burns second degree [Recovering/Resolving]
  - Blood pressure decreased [Recovering/Resolving]
  - Dehydration [Recovering/Resolving]
